FAERS Safety Report 7008889-7 (Version None)
Quarter: 2010Q3

REPORT INFORMATION
  Report Type: 
  Country: None (occurrence: None)
  Receive Date: 20100923
  Receipt Date: 20100915
  Transmission Date: 20110219
  Serious: Yes (Hospitalization)
  Sender: FDA-Public Use
  Company Number: US-BIOGENIDEC-2010BI031814

PATIENT
  Sex: Female
  Weight: 74 kg

DRUGS (10)
  1. AVONEX [Suspect]
     Indication: MULTIPLE SCLEROSIS
     Route: 030
     Dates: start: 19970101
  2. AVONEX [Suspect]
     Route: 030
     Dates: end: 20090201
  3. AVONEX [Suspect]
     Route: 030
     Dates: start: 20100101
  4. METFORMIN [Concomitant]
     Indication: DIABETES MELLITUS
     Route: 048
  5. GLYBURIDE [Concomitant]
     Indication: DIABETES MELLITUS
     Route: 048
  6. ACTOS [Concomitant]
     Indication: DIABETES MELLITUS
     Route: 048
  7. STARLIX [Concomitant]
     Indication: DIABETES MELLITUS
     Route: 048
  8. HUMALOG [Concomitant]
     Indication: DIABETES MELLITUS
     Route: 058
  9. HUMALIN INSULIN [Concomitant]
     Indication: DIABETES MELLITUS
     Route: 058
  10. LANTUS [Concomitant]
     Indication: DIABETES MELLITUS
     Route: 058

REACTIONS (8)
  - BLISTER [None]
  - DISLOCATION OF VERTEBRA [None]
  - GASTRIC BYPASS [None]
  - GOUT [None]
  - INFLUENZA LIKE ILLNESS [None]
  - INTERVERTEBRAL DISC COMPRESSION [None]
  - INTERVERTEBRAL DISC DEGENERATION [None]
  - SCIATICA [None]
